FAERS Safety Report 6419355-1 (Version None)
Quarter: 2009Q4

REPORT INFORMATION
  Report Type: 
  Country: None (occurrence: None)
  Receive Date: 20091009
  Receipt Date: 20090914
  Transmission Date: 20100525
  Serious: Yes (Other)
  Sender: FDA-Public Use
  Company Number: ZYD-09-AE-117

PATIENT
  Sex: Female

DRUGS (9)
  1. HALOPERIDOL [Suspect]
     Indication: SCHIZOPHRENIA, PARANOID TYPE
     Dosage: 1 TABLET - BID - ORAL
     Route: 048
     Dates: start: 20090301
  2. FLUOXETINE [Concomitant]
  3. BENZOTROPINE [Concomitant]
  4. HALDOL DECOANATE [Concomitant]
  5. ZYPREXA [Concomitant]
  6. LORAZEPAM [Concomitant]
  7. AMLODIPINE [Concomitant]
  8. HYDROCHLOROTHIAZIDE [Concomitant]
  9. PRILOSEC [Concomitant]

REACTIONS (2)
  - DRUG INEFFECTIVE [None]
  - SCHIZOPHRENIA, PARANOID TYPE [None]
